FAERS Safety Report 6877985-7 (Version None)
Quarter: 2010Q3

REPORT INFORMATION
  Report Type: 
  Country: None (occurrence: None)
  Receive Date: 20100727
  Receipt Date: 20100712
  Transmission Date: 20110219
  Serious: No
  Sender: FDA-Public Use
  Company Number: US-B.I. PHARMACEUTICALS,INC./RIDGEFIELD-2010-BP-07851BP

PATIENT
  Age: 92 Year
  Sex: Female

DRUGS (7)
  1. ZANTAC 150 [Suspect]
     Indication: HIATUS HERNIA
     Dosage: 150 MG
     Dates: start: 20100709, end: 20100709
  2. ZANTAC 150 [Suspect]
     Dosage: 300 MG
     Route: 048
     Dates: start: 20100710
  3. SYNTHROID [Concomitant]
     Indication: HYPOTHYROIDISM
  4. CELEBREX [Concomitant]
     Indication: OSTEOPOROSIS
  5. CELEBREX [Concomitant]
     Indication: ARTHRITIS
  6. LIPITOR [Concomitant]
     Indication: OSTEOPOROSIS
  7. LIPITOR [Concomitant]
     Indication: ARTHRITIS

REACTIONS (2)
  - HYPERCHLORHYDRIA [None]
  - MALAISE [None]
